FAERS Safety Report 15518877 (Version 3)
Quarter: 2018Q4

REPORT INFORMATION
  Report Type: Spontaneous
  Country: JP (occurrence: JP)
  Receive Date: 20181017
  Receipt Date: 20181203
  Transmission Date: 20190205
  Serious: Yes (Hospitalization, Other)
  Sender: FDA-Public Use
  Company Number: JP-SAKK-BA201801935001

PATIENT
  Age: 42 Year
  Sex: Male
  Weight: 57 kg

DRUGS (30)
  1. IRINOTECAN [Concomitant]
     Active Substance: IRINOTECAN
     Dosage: UNK
     Route: 065
     Dates: start: 20170920
  2. FLUOROURACIL. [Concomitant]
     Active Substance: FLUOROURACIL
     Dosage: UNK
  3. DEXAMETHASONE. [Concomitant]
     Active Substance: DEXAMETHASONE
     Indication: PREMEDICATION
     Dosage: 6.6 MG, QOW
     Route: 065
     Dates: start: 20180124, end: 20180221
  4. LEVOFOLINATE CALCIUM [Concomitant]
     Active Substance: LEVOLEUCOVORIN CALCIUM
     Dosage: UNK
     Dates: start: 20180221, end: 20180221
  5. ELPLAT [Suspect]
     Active Substance: OXALIPLATIN
     Indication: COLON CANCER
     Dosage: 141.5 MG, QD
     Route: 041
     Dates: start: 20120808, end: 20120808
  6. ELPLAT [Suspect]
     Active Substance: OXALIPLATIN
     Dosage: 141.5 MG, QD
     Route: 041
     Dates: start: 20130313, end: 20130313
  7. FLUOROURACIL. [Concomitant]
     Active Substance: FLUOROURACIL
     Indication: COLON CANCER
     Dosage: 420 MG, QOW
     Route: 042
     Dates: start: 20180124, end: 20180124
  8. ELPLAT [Suspect]
     Active Substance: OXALIPLATIN
     Dosage: 141.5 MG, QD
     Route: 041
     Dates: start: 20130612, end: 20130612
  9. ELPLAT [Suspect]
     Active Substance: OXALIPLATIN
     Dosage: 141.5 MG, QD
     Route: 041
     Dates: start: 20121024, end: 20121024
  10. ELPLAT [Suspect]
     Active Substance: OXALIPLATIN
     Dosage: 141.5 MG, QD
     Route: 041
     Dates: start: 20130814, end: 20130814
  11. ELPLAT [Suspect]
     Active Substance: OXALIPLATIN
     Dosage: 141.5 MG, QD
     Route: 041
     Dates: start: 20131009, end: 20131009
  12. ELPLAT [Suspect]
     Active Substance: OXALIPLATIN
     Dosage: 141.5 MG, QD
     Route: 041
     Dates: start: 20160622, end: 20160622
  13. CALCIUM FOLINATE [Concomitant]
     Active Substance: LEUCOVORIN CALCIUM
     Dosage: UNK
     Route: 065
  14. DEXAMETHASONE. [Concomitant]
     Active Substance: DEXAMETHASONE
     Dosage: UNK
     Dates: start: 20120808, end: 20120808
  15. ERBITUX [Concomitant]
     Active Substance: CETUXIMAB
     Dosage: UNK
     Dates: start: 20120808, end: 20120808
  16. VECTIBIX [Concomitant]
     Active Substance: PANITUMUMAB
     Dosage: UNK
     Dates: start: 20160622, end: 20160622
  17. ZALTRAP [Suspect]
     Active Substance: ZIV-AFLIBERCEPT
     Dosage: UNK
     Route: 041
  18. ELPLAT [Suspect]
     Active Substance: OXALIPLATIN
     Dosage: 141.5 MG, QD
     Route: 041
     Dates: start: 20140507, end: 20140507
  19. CALCIUM FOLINATE [Concomitant]
     Active Substance: LEUCOVORIN CALCIUM
     Indication: COLON CANCER
     Dosage: 200 MG, QOW
     Route: 042
     Dates: start: 20180124, end: 20180124
  20. XELODA [Concomitant]
     Active Substance: CAPECITABINE
  21. ZALTRAP [Suspect]
     Active Substance: ZIV-AFLIBERCEPT
     Indication: COLON CANCER
     Dosage: 240 MG, QOW
     Route: 041
     Dates: start: 20180124, end: 20180124
  22. IRINOTECAN [Concomitant]
     Active Substance: IRINOTECAN
     Indication: COLON CANCER
     Dosage: 250 MG, QOW
     Route: 042
     Dates: start: 20180124, end: 20180124
  23. FLUOROURACIL. [Concomitant]
     Active Substance: FLUOROURACIL
     Dosage: 2500 MG, QOW
     Route: 042
     Dates: start: 20180124, end: 20180124
  24. FLUOROURACIL. [Concomitant]
     Active Substance: FLUOROURACIL
     Dosage: UNK
     Route: 065
  25. LEVOFOLINATE CALCIUM [Concomitant]
     Active Substance: LEVOLEUCOVORIN CALCIUM
     Dosage: UNK
     Dates: start: 20120808, end: 20120808
  26. VECTIBIX [Concomitant]
     Active Substance: PANITUMUMAB
     Dosage: UNK
     Dates: start: 20140507, end: 20140507
  27. ALOXI [Concomitant]
     Active Substance: PALONOSETRON HYDROCHLORIDE
     Indication: PREMEDICATION
     Dosage: 0.75 MG, QOW
     Route: 065
     Dates: start: 20180124, end: 20180221
  28. ALOXI [Concomitant]
     Active Substance: PALONOSETRON HYDROCHLORIDE
     Dosage: UNK
     Dates: start: 20120808
  29. ERBITUX [Concomitant]
     Active Substance: CETUXIMAB
     Dosage: UNK
     Dates: start: 20121024, end: 20121024
  30. AVASTIN [Concomitant]
     Active Substance: BEVACIZUMAB

REACTIONS (9)
  - Gastric residual increased [Unknown]
  - Loss of consciousness [Unknown]
  - Varicose vein ruptured [Unknown]
  - Portal hypertension [Unknown]
  - Thrombocytopenia [Unknown]
  - Oesophageal varices haemorrhage [Recovered/Resolved]
  - Blood pressure decreased [Unknown]
  - Splenomegaly [Unknown]
  - Anaemia [Unknown]

NARRATIVE: CASE EVENT DATE: 20180306
